FAERS Safety Report 4561376-8 (Version None)
Quarter: 2005Q1

REPORT INFORMATION
  Report Type: 
  Country: None (occurrence: None)
  Receive Date: 20050121
  Receipt Date: 20050112
  Transmission Date: 20050727
  Serious: Yes (Hospitalization, Other)
  Sender: FDA-Public Use
  Company Number: 2005012036

PATIENT
  Age: 74 Year
  Sex: Female
  Weight: 74.8435 kg

DRUGS (13)
  1. DILANTIN KAPSEAL [Suspect]
     Indication: CONVULSION
     Dosage: ORAL
     Route: 048
     Dates: start: 20040101
  2. SINEMET [Concomitant]
  3. FLUOXETINE HYDROCHLORIDE [Concomitant]
  4. DESIPRAMINE (DESPIRAMINE) [Concomitant]
  5. DONEPEZIL HCL [Concomitant]
  6. MEMANTINE HCL [Concomitant]
  7. ASPIRIN [Concomitant]
  8. ATORVASTATIN (ATORVASTATIN) [Concomitant]
  9. DOCUSATE SODIUM (DOCUSATE SODIUM) [Concomitant]
  10. TOCOPHEROL (TOCOPHEROL) [Concomitant]
  11. PYRIDOXINE HCL [Concomitant]
  12. FOLIC ACID [Concomitant]
  13. GINKGO BILOBA (GINKGO BILOBA) [Concomitant]

REACTIONS (8)
  - ALANINE AMINOTRANSFERASE INCREASED [None]
  - ANTICONVULSANT DRUG LEVEL DECREASED [None]
  - ASPARTATE AMINOTRANSFERASE INCREASED [None]
  - CONDITION AGGRAVATED [None]
  - CONVULSION [None]
  - DYSPHAGIA [None]
  - MEDICATION ERROR [None]
  - PHARMACEUTICAL PRODUCT COMPLAINT [None]
